FAERS Safety Report 9807480 (Version 1)
Quarter: 2014Q1

REPORT INFORMATION
  Report Type: Spontaneous
  Country: US (occurrence: US)
  Receive Date: 20140110
  Receipt Date: 20140110
  Transmission Date: 20141002
  Serious: No
  Sender: FDA-Public Use
  Company Number: US-SANOFI-AVENTIS-2013SA081004

PATIENT
  Sex: Male

DRUGS (9)
  1. PLAVIX [Suspect]
     Route: 048
  2. RANEXA [Suspect]
     Route: 065
  3. PRAVASTATIN [Concomitant]
     Route: 065
  4. METFORMIN [Concomitant]
     Route: 065
  5. FISH OIL [Concomitant]
  6. AMLODIPINE [Concomitant]
     Route: 065
  7. IMDUR [Concomitant]
     Route: 065
  8. ASPIRIN [Concomitant]
     Route: 065
  9. MULTIVITAMINS [Concomitant]

REACTIONS (2)
  - Back pain [Not Recovered/Not Resolved]
  - Arthralgia [Not Recovered/Not Resolved]
